FAERS Safety Report 14586667 (Version 1)
Quarter: 2018Q1

REPORT INFORMATION
  Report Type: Other
  Country: FR (occurrence: FR)
  Receive Date: 20180301
  Receipt Date: 20180301
  Transmission Date: 20180509
  Serious: Yes (Life-Threatening, Hospitalization, Other)
  Sender: FDA-Public Use
  Company Number: FR-RARE DISEASE THERAPEUTICS, INC.-2042812

PATIENT
  Age: 24 Month
  Sex: Male

DRUGS (8)
  1. PEGASPARGASE [Suspect]
     Active Substance: PEGASPARGASE
     Route: 042
  2. VINCRISTINE SULFATE. [Suspect]
     Active Substance: VINCRISTINE SULFATE
     Route: 042
     Dates: start: 20170530, end: 20170606
  3. DEXAMETHASONE. [Suspect]
     Active Substance: DEXAMETHASONE
     Route: 048
     Dates: start: 20170426, end: 20170603
  4. METHOTREXATE. [Suspect]
     Active Substance: METHOTREXATE
     Route: 048
     Dates: start: 20170309, end: 20170624
  5. METHOTREXATE. [Suspect]
     Active Substance: METHOTREXATE
     Route: 037
     Dates: start: 20170425, end: 20170531
  6. PEGASPARGASE [Suspect]
     Active Substance: PEGASPARGASE
     Route: 042
     Dates: start: 20170516, end: 20170613
  7. VINCRISTINE SULFATE. [Suspect]
     Active Substance: VINCRISTINE SULFATE
     Route: 042
     Dates: start: 20170426, end: 20170509
  8. PURIXAN [Suspect]
     Active Substance: MERCAPTOPURINE
     Indication: ACUTE LYMPHOCYTIC LEUKAEMIA
     Route: 048
     Dates: start: 20170426

REACTIONS (4)
  - Impaired healing [Recovered/Resolved]
  - Central venous catheterisation [Recovered/Resolved]
  - Device related infection [Recovered/Resolved]
  - Central venous catheter removal [Recovered/Resolved]

NARRATIVE: CASE EVENT DATE: 20170607
